FAERS Safety Report 15126081 (Version 1)
Quarter: 2018Q3

REPORT INFORMATION
  Report Type: Other
  Country: JP (occurrence: JP)
  Receive Date: 20180710
  Receipt Date: 20180710
  Transmission Date: 20181010
  Serious: Yes (Hospitalization)
  Sender: FDA-Public Use
  Company Number: JP-B. BRAUN MEDICAL INC.-2051659

PATIENT
  Age: 21 Year
  Sex: Female

DRUGS (1)
  1. HEPARIN SODIUM IN DEXTROSE [Suspect]
     Active Substance: HEPARIN SODIUM

REACTIONS (3)
  - Vascular pseudoaneurysm [None]
  - Rectal haemorrhage [None]
  - Oral mucosa haematoma [None]
